FAERS Safety Report 7205000-4 (Version None)
Quarter: 2010Q4

REPORT INFORMATION
  Report Type: 
  Country: None (occurrence: None)
  Receive Date: 20101230
  Receipt Date: 20101227
  Transmission Date: 20110411
  Serious: Yes (Death)
  Sender: FDA-Public Use
  Company Number: PHHY2010US88625

PATIENT
  Sex: Female

DRUGS (8)
  1. ZOMETA [Suspect]
     Dosage: 4 MG, ONCE IN A MONTH
     Dates: start: 20101001
  2. DIGOXIN [Concomitant]
  3. DIOVAN [Concomitant]
  4. FUROSEMIDE [Concomitant]
  5. LANOXIN [Concomitant]
  6. LASIX [Concomitant]
  7. LISINOPRIL [Concomitant]
  8. METOPROLOL [Concomitant]

REACTIONS (1)
  - DEATH [None]
